FAERS Safety Report 9592347 (Version 1)
Quarter: 2013Q4

REPORT INFORMATION
  Report Type: Spontaneous
  Country: US (occurrence: None)
  Receive Date: 20131003
  Receipt Date: 20131003
  Transmission Date: 20140711
  Serious: Yes (Life-Threatening, Hospitalization, Disabling, Other)
  Sender: FDA-Public Use
  Company Number: None

PATIENT
  Age: 54 Year
  Sex: Male
  Weight: 79.83 kg

DRUGS (2)
  1. ENBREL [Suspect]
     Indication: PSORIASIS
     Route: 030
  2. ENBREL [Suspect]
     Indication: PSORIATIC ARTHROPATHY
     Route: 030

REACTIONS (4)
  - Colon cancer [None]
  - Procedural complication [None]
  - Intestinal obstruction [None]
  - Haemorrhage [None]
